FAERS Safety Report 9423412 (Version 1)
Quarter: 2013Q3

REPORT INFORMATION
  Report Type: Spontaneous
  Country: US (occurrence: US)
  Receive Date: 20130726
  Receipt Date: 20130726
  Transmission Date: 20140515
  Serious: No
  Sender: FDA-Public Use
  Company Number: US-BAYER-2013-090837

PATIENT
  Age: 72 Year
  Sex: Male
  Weight: 125 kg

DRUGS (2)
  1. ALEVE TABLET [Suspect]
     Dosage: 1 DF, PRN
     Route: 048
  2. INSULIN [Concomitant]

REACTIONS (2)
  - Somnolence [None]
  - Pre-existing condition improved [None]
